FAERS Safety Report 7416630-9 (Version None)
Quarter: 2011Q2

REPORT INFORMATION
  Report Type: 
  Country: None (occurrence: None)
  Receive Date: 20110415
  Receipt Date: 20110406
  Transmission Date: 20111010
  Serious: No
  Sender: FDA-Public Use
  Company Number: US-BIOGENIDEC-2010BI029603

PATIENT
  Age: 55 Year
  Sex: Female

DRUGS (2)
  1. TYSABRI [Suspect]
     Route: 042
     Dates: start: 20100727
  2. TYSABRI [Suspect]
     Indication: MULTIPLE SCLEROSIS
     Route: 042
     Dates: start: 20080515, end: 20090528

REACTIONS (6)
  - BRONCHITIS [None]
  - INFECTED SKIN ULCER [None]
  - LYMPHOEDEMA [None]
  - DERMATITIS CONTACT [None]
  - OTORRHOEA [None]
  - INFECTION [None]
